FAERS Safety Report 5373625-7 (Version None)
Quarter: 2007Q2

REPORT INFORMATION
  Report Type: 
  Country: None (occurrence: None)
  Receive Date: 20070628
  Receipt Date: 20070619
  Transmission Date: 20071010
  Serious: Yes (Other)
  Sender: FDA-Public Use
  Company Number: JP-ROCHE-494685

PATIENT
  Age: 21 Year
  Sex: Female

DRUGS (5)
  1. TAMIFLU [Suspect]
     Route: 048
     Dates: start: 20070417, end: 20070418
  2. CALONAL [Concomitant]
     Route: 048
     Dates: end: 20070418
  3. DASEN [Concomitant]
     Route: 048
     Dates: start: 20070416, end: 20070420
  4. FLAVERIC [Concomitant]
     Route: 048
     Dates: start: 20070416, end: 20070420
  5. MUCODYNE [Concomitant]
     Route: 048
     Dates: start: 20070417, end: 20070421

REACTIONS (1)
  - ENTEROCOLITIS HAEMORRHAGIC [None]
